FAERS Safety Report 5890650-8 (Version None)
Quarter: 2008Q3

REPORT INFORMATION
  Report Type: 
  Country: None (occurrence: None)
  Receive Date: 20080922
  Receipt Date: 20060519
  Transmission Date: 20090109
  Serious: No
  Sender: FDA-Public Use
  Company Number: US-BAYER-200831102NA

PATIENT
  Sex: Male

DRUGS (1)
  1. AVELOX [Suspect]
     Indication: DRUG USE FOR UNKNOWN INDICATION
     Dates: start: 20060101

REACTIONS (6)
  - ANXIETY [None]
  - ANXIETY DISORDER [None]
  - BURNING SENSATION [None]
  - NERVOUSNESS [None]
  - PARAESTHESIA [None]
  - PERIPHERAL COLDNESS [None]
